FAERS Safety Report 25105172 (Version 1)
Quarter: 2025Q1

REPORT INFORMATION
  Report Type: Spontaneous
  Country: US (occurrence: None)
  Receive Date: 20250320
  Receipt Date: 20250320
  Transmission Date: 20250408
  Serious: No
  Sender: FDA-CTU
  Company Number: None

PATIENT
  Age: 43 Year
  Sex: Male

DRUGS (1)
  1. VARENICLINE [Suspect]
     Active Substance: VARENICLINE
     Dates: start: 20240717, end: 20240816

REACTIONS (2)
  - Agitation [None]
  - Irritability [None]

NARRATIVE: CASE EVENT DATE: 20240827
